FAERS Safety Report 16429246 (Version 1)
Quarter: 2019Q2

REPORT INFORMATION
  Report Type: Spontaneous
  Country: US (occurrence: US)
  Receive Date: 20190614
  Receipt Date: 20190614
  Transmission Date: 20190711
  Serious: No
  Sender: FDA-Public Use
  Company Number: US-SCIEGEN PHARMACEUTICALS INC-2019SCISPO00197

PATIENT
  Sex: Female
  Weight: 149 kg

DRUGS (6)
  1. LISINOPRIL. [Concomitant]
     Active Substance: LISINOPRIL
  2. GABAPENTIN CAPSULES [Suspect]
     Active Substance: GABAPENTIN
     Dates: start: 20190530
  3. BELBUCA [Concomitant]
     Active Substance: BUPRENORPHINE HYDROCHLORIDE
  4. BACLOFEN. [Concomitant]
     Active Substance: BACLOFEN
  5. METOPROLOL. [Concomitant]
     Active Substance: METOPROLOL
  6. ZANZIBAR [Concomitant]

REACTIONS (5)
  - Bronchitis [Unknown]
  - Drooling [Unknown]
  - Product use in unapproved indication [Unknown]
  - Tremor [Unknown]
  - Dizziness [Unknown]
